FAERS Safety Report 4661639-1 (Version None)
Quarter: 2005Q2

REPORT INFORMATION
  Report Type: 
  Country: None (occurrence: None)
  Receive Date: 20050511
  Receipt Date: 20050511
  Transmission Date: 20051028
  Serious: Yes (Hospitalization)
  Sender: FDA-Public Use
  Company Number: None

PATIENT
  Age: 56 Year
  Sex: Female

DRUGS (12)
  1. FUROSEMIDE [Suspect]
     Indication: HYPERTENSION
     Dosage: 40 MG BID
     Dates: start: 20021201
  2. HYDROCHLOROTHIAZIDE [Suspect]
     Indication: HYPERTENSION
     Dosage: 25 MG QD
     Dates: start: 20000301
  3. PLAVIX [Concomitant]
  4. HYDRALAZINE HCL [Concomitant]
  5. CITALOPRAM [Concomitant]
  6. CLONAZEPAM [Concomitant]
  7. TRAZODONE [Concomitant]
  8. METFORMIN [Concomitant]
  9. ASPIRIN [Concomitant]
  10. NITROGLYCERIN [Concomitant]
  11. VALSARTAN [Concomitant]
  12. LORATADINE [Concomitant]

REACTIONS (1)
  - RENAL FAILURE ACUTE [None]
